FAERS Safety Report 6831257-5 (Version None)
Quarter: 2010Q3

REPORT INFORMATION
  Report Type: 
  Country: None (occurrence: None)
  Receive Date: 20100709
  Receipt Date: 20100709
  Transmission Date: 20110219
  Serious: No
  Sender: FDA-Public Use
  Company Number: None

PATIENT
  Age: 50 Year
  Sex: Female
  Weight: 61.2356 kg

DRUGS (1)
  1. PAXIL [Suspect]
     Indication: DEPRESSION
     Dosage: ONE ONCE A DAY PO
     Route: 048
     Dates: start: 20010916, end: 20060515

REACTIONS (4)
  - APHASIA [None]
  - DIZZINESS [None]
  - MEMORY IMPAIRMENT [None]
  - PARAESTHESIA [None]
